FAERS Safety Report 20133882 (Version 2)
Quarter: 2022Q1

REPORT INFORMATION
  Report Type: Spontaneous
  Country: AR (occurrence: AR)
  Receive Date: 20211201
  Receipt Date: 20220103
  Transmission Date: 20220424
  Serious: Yes (Other)
  Sender: FDA-Public Use
  Company Number: AR-PFIZER INC-202101625530

PATIENT
  Age: 14 Year
  Sex: Male

DRUGS (1)
  1. ENBREL [Suspect]
     Active Substance: ETANERCEPT
     Indication: Juvenile idiopathic arthritis
     Dosage: 50 MG, WEEKLY
     Route: 065
     Dates: start: 20190530, end: 20211111

REACTIONS (2)
  - Biopsy intestine [Not Recovered/Not Resolved]
  - Biopsy stomach [Not Recovered/Not Resolved]
